FAERS Safety Report 20616623 (Version 1)
Quarter: 2022Q1

REPORT INFORMATION
  Report Type: Spontaneous
  Country: NL (occurrence: NL)
  Receive Date: 20220321
  Receipt Date: 20220321
  Transmission Date: 20220423
  Serious: Yes (Hospitalization)
  Sender: FDA-Public Use
  Company Number: NL-PFIZER INC-202200402494

PATIENT
  Sex: Female

DRUGS (2)
  1. REVATIO [Suspect]
     Active Substance: SILDENAFIL CITRATE
     Indication: Pulmonary hypertension
     Dosage: 20 MG, 3X/DAY
     Route: 048
  2. AMBRISENTAN [Concomitant]
     Active Substance: AMBRISENTAN
     Dosage: UNK

REACTIONS (4)
  - Fall [Unknown]
  - Rib fracture [Unknown]
  - Fluid retention [Unknown]
  - Mobility decreased [Unknown]
